FAERS Safety Report 15115633 (Version 1)
Quarter: 2018Q3

REPORT INFORMATION
  Report Type: Spontaneous
  Country: US (occurrence: US)
  Receive Date: 20180706
  Receipt Date: 20180706
  Transmission Date: 20181010
  Serious: No
  Sender: FDA-Public Use
  Company Number: US-RECKITT BENCKISER HEALTHCARE INT LIMITED-RB-84035-2018

PATIENT
  Age: 66 Year
  Sex: Male

DRUGS (2)
  1. BENZONATATE. [Suspect]
     Active Substance: BENZONATATE
     Indication: COUGH
     Dosage: 200 MG, UNK
     Route: 065
     Dates: start: 201802
  2. MUCINEX DM MAXIMUM STRENGTH [Suspect]
     Active Substance: DEXTROMETHORPHAN HYDROBROMIDE\GUAIFENESIN
     Indication: BRONCHITIS
     Dosage: 1200 MG, BID (AMOUNT USED: 4 TABLETS).
     Route: 065
     Dates: start: 201802, end: 201802

REACTIONS (4)
  - Vomiting [Recovered/Resolved]
  - Diarrhoea [Recovered/Resolved]
  - Dizziness [Recovered/Resolved]
  - Product use in unapproved indication [Recovered/Resolved]

NARRATIVE: CASE EVENT DATE: 201802
